FAERS Safety Report 7125927-1 (Version None)
Quarter: 2010Q4

REPORT INFORMATION
  Report Type: 
  Country: None (occurrence: None)
  Receive Date: 20101129
  Receipt Date: 20101122
  Transmission Date: 20110411
  Serious: Yes (Hospitalization)
  Sender: FDA-Public Use
  Company Number: PHHO2010KR13102

PATIENT
  Sex: Female
  Weight: 56.1 kg

DRUGS (3)
  1. SANDOSTATIN LAR [Suspect]
     Indication: ACROMEGALY
     Dosage: 20MG G4WKS
     Route: 030
     Dates: start: 20100504, end: 20100727
  2. SANDOSTATIN LAR [Suspect]
     Dosage: 20MG G4WKS
     Route: 030
     Dates: start: 20100928
  3. SYNTHROID [Concomitant]
     Indication: HYPOTHYROIDISM
     Dosage: UNK

REACTIONS (4)
  - DIARRHOEA [None]
  - GASTRITIS [None]
  - PYREXIA [None]
  - VOMITING [None]
